FAERS Safety Report 21651120 (Version 5)
Quarter: 2023Q1

REPORT INFORMATION
  Report Type: Spontaneous
  Country: US (occurrence: US)
  Receive Date: 20221128
  Receipt Date: 20230310
  Transmission Date: 20230417
  Serious: Yes (Other)
  Sender: FDA-Public Use
  Company Number: US-PFIZER INC-202201325172

PATIENT
  Age: 84 Year
  Sex: Female
  Weight: 84.807 kg

DRUGS (2)
  1. ZITHROMAX [Suspect]
     Active Substance: AZITHROMYCIN DIHYDRATE
     Dosage: UNK
     Route: 048
  2. AZITHROMYCIN ANHYDROUS [Suspect]
     Active Substance: AZITHROMYCIN ANHYDROUS
     Dosage: TOOK ONLY 1/1 (HALF)
     Route: 048

REACTIONS (6)
  - Sinusitis [Recovered/Resolved]
  - Drug hypersensitivity [Unknown]
  - Swollen tongue [Recovered/Resolved]
  - Urticaria [Recovered/Resolved]
  - Drug intolerance [Unknown]
  - Bronchitis [Recovered/Resolved]
